FAERS Safety Report 24058160 (Version 2)
Quarter: 2024Q3

REPORT INFORMATION
  Report Type: Spontaneous
  Country: ES (occurrence: ES)
  Receive Date: 20240708
  Receipt Date: 20240827
  Transmission Date: 20241017
  Serious: Yes (Other)
  Sender: ABBVIE
  Company Number: ES-ABBVIE-5830016

PATIENT
  Sex: Male
  Weight: 82 kg

DRUGS (2)
  1. RINVOQ [Suspect]
     Active Substance: UPADACITINIB
     Indication: Axial spondyloarthritis
     Route: 048
     Dates: start: 20240517, end: 20240619
  2. LEFLUNOMIDE [Concomitant]
     Active Substance: LEFLUNOMIDE
     Indication: Polyarthritis
     Dosage: DURATION TEXT: 1 YEAR 1 MONTH
     Route: 048
     Dates: start: 20230509

REACTIONS (13)
  - Transient ischaemic attack [Recovered/Resolved]
  - Hypertension [Unknown]
  - Unevaluable event [Unknown]
  - Ventricular hypertrophy [Unknown]
  - Aortic valve incompetence [Unknown]
  - Cardiac hypertrophy [Unknown]
  - Hypothalamo-pituitary disorder [Unknown]
  - Left atrial dilatation [Unknown]
  - Tricuspid valve incompetence [Unknown]
  - Mitral valve incompetence [Unknown]
  - Vertebral osteophyte [Unknown]
  - Spinal disorder [Unknown]
  - Lacunar infarction [Unknown]

NARRATIVE: CASE EVENT DATE: 20240101
